FAERS Safety Report 23854168 (Version 1)
Quarter: 2024Q2

REPORT INFORMATION
  Report Type: Spontaneous
  Country: US (occurrence: US)
  Receive Date: 20240514
  Receipt Date: 20240514
  Transmission Date: 20240716
  Serious: No
  Sender: FDA-Public Use
  Company Number: US-CIPLA LTD.-2024US01604

PATIENT

DRUGS (9)
  1. ALBUTEROL [Suspect]
     Active Substance: ALBUTEROL
     Indication: Dyspnoea
     Dosage: 2 PUFFS (180 MCG) EVERY 4 HOURS AS NEEDED
     Dates: start: 20240202
  2. VASOTEC [Concomitant]
     Active Substance: ENALAPRIL MALEATE
     Indication: Blood cholesterol abnormal
     Dosage: 2.5MG/1 TABLET/ONCE A DAY
     Route: 065
  3. VASOTEC [Concomitant]
     Active Substance: ENALAPRIL MALEATE
     Indication: Cardiac disorder
  4. PLAVIX [Concomitant]
     Active Substance: CLOPIDOGREL BISULFATE
     Indication: Cardiac disorder
     Dosage: 75MG/1 TABLET/ONCE A DAY
     Route: 065
  5. COREG [Concomitant]
     Active Substance: CARVEDILOL
     Indication: Blood cholesterol abnormal
     Dosage: 6.25MG/1 TABLET/TWICE A DAY
     Route: 065
  6. COREG [Concomitant]
     Active Substance: CARVEDILOL
     Indication: Blood pressure abnormal
  7. COREG [Concomitant]
     Active Substance: CARVEDILOL
     Indication: Cardiac disorder
  8. LIPITOR [Concomitant]
     Active Substance: ATORVASTATIN CALCIUM
     Indication: Blood cholesterol abnormal
     Dosage: 20MG/1 TABLET/ONCE A DAY
     Route: 065
  9. CYMBALTA [Concomitant]
     Active Substance: DULOXETINE HYDROCHLORIDE
     Indication: Prostate cancer
     Dosage: 60MG/1 TABLET/ONCE A DAY
     Route: 065
     Dates: start: 2019

REACTIONS (3)
  - Dyspnoea [Recovered/Resolved]
  - Device delivery system issue [Unknown]
  - Device malfunction [Unknown]

NARRATIVE: CASE EVENT DATE: 20240202
